FAERS Safety Report 7491506-X (Version None)
Quarter: 2011Q2

REPORT INFORMATION
  Report Type: 
  Country: None (occurrence: None)
  Receive Date: 20110519
  Receipt Date: 20101118
  Transmission Date: 20111010
  Serious: Yes (Hospitalization)
  Sender: FDA-Public Use
  Company Number: DE-AMGEN-QUU427512

PATIENT
  Age: 75 Year
  Sex: Female
  Weight: 125 kg

DRUGS (2)
  1. ENBREL [Suspect]
     Indication: PSORIASIS
     Dosage: 25 MG, QWK
     Route: 058
     Dates: start: 20080725, end: 20100101
  2. ENBREL [Suspect]
     Indication: PSORIATIC ARTHROPATHY

REACTIONS (3)
  - PEMPHIGOID [None]
  - PRODUCTIVE COUGH [None]
  - HAEMOPTYSIS [None]
